FAERS Safety Report 10095808 (Version 3)
Quarter: 2015Q3

REPORT INFORMATION
  Report Type: Spontaneous
  Country: US (occurrence: US)
  Receive Date: 20140422
  Receipt Date: 20150814
  Transmission Date: 20151125
  Serious: No
  Sender: FDA-Public Use
  Company Number: US-GILEAD-2013-0072974

PATIENT
  Age: 60 Year
  Sex: Male

DRUGS (5)
  1. SILDENAFIL. [Suspect]
     Active Substance: SILDENAFIL
     Indication: PRODUCT USED FOR UNKNOWN INDICATION
     Dosage: UNK
     Dates: start: 20130101
  2. LETAIRIS [Suspect]
     Active Substance: AMBRISENTAN
     Indication: PULMONARY HYPERTENSION
     Dosage: 10 MG, QD
     Dates: start: 20090405
  3. LETAIRIS [Suspect]
     Active Substance: AMBRISENTAN
     Indication: RIGHT-TO-LEFT CARDIAC SHUNT
  4. REVATIO [Concomitant]
     Active Substance: SILDENAFIL CITRATE
     Indication: PRODUCT USED FOR UNKNOWN INDICATION
  5. LETAIRIS [Suspect]
     Active Substance: AMBRISENTAN
     Indication: VENTRICULAR SEPTAL DEFECT

REACTIONS (7)
  - Back pain [Unknown]
  - Nasopharyngitis [Unknown]
  - Headache [Unknown]
  - Respiratory tract infection [Unknown]
  - Nasal congestion [Unknown]
  - Dry throat [Unknown]
  - Sinusitis [Unknown]
